FAERS Safety Report 6882644-0 (Version None)
Quarter: 2010Q3

REPORT INFORMATION
  Report Type: 
  Country: None (occurrence: None)
  Receive Date: 20100701
  Receipt Date: 20100212
  Transmission Date: 20110219
  Serious: Yes (Hospitalization, Other)
  Sender: FDA-Public Use
  Company Number: 217896USA

PATIENT
  Age: 39 Year
  Sex: Female

DRUGS (2)
  1. SEASONIQUE [Suspect]
     Dosage: ORAL
     Route: 048
     Dates: start: 20080101, end: 20091101
  2. PRISTIQ [Concomitant]

REACTIONS (1)
  - PULMONARY EMBOLISM [None]
